FAERS Safety Report 12944926 (Version 1)
Quarter: 2016Q4

REPORT INFORMATION
  Report Type: Spontaneous
  Country: CH (occurrence: CH)
  Receive Date: 20161116
  Receipt Date: 20161116
  Transmission Date: 20170207
  Serious: Yes (Life-Threatening)
  Sender: FDA-Public Use
  Company Number: CH-ASTRAZENECA-2016SF13358

PATIENT
  Age: 14849 Day
  Sex: Female
  Weight: 117 kg

DRUGS (10)
  1. DAFALGAN [Concomitant]
     Active Substance: ACETAMINOPHEN
     Route: 048
  2. TRITTICO [Interacting]
     Active Substance: TRAZODONE HYDROCHLORIDE
     Indication: DEPRESSION
     Route: 048
  3. ARIXTRA [Concomitant]
     Active Substance: FONDAPARINUX SODIUM
     Route: 058
     Dates: start: 20161006, end: 20161006
  4. OMEPRAZOLE. [Concomitant]
     Active Substance: OMEPRAZOLE
  5. NOVALGIN [Concomitant]
     Active Substance: METAMIZOLE SODIUM
     Route: 048
  6. PONSTAN [Concomitant]
     Active Substance: MEFENAMIC ACID
     Route: 048
  7. BRILIQUE [Suspect]
     Active Substance: TICAGRELOR
     Indication: ANTICOAGULANT THERAPY
     Dosage: 180.0MG UNKNOWN
     Route: 048
     Dates: start: 20161006, end: 20161006
  8. CERAZETTE [Concomitant]
     Active Substance: DESOGESTREL
     Route: 048
  9. JANUMET [Concomitant]
     Active Substance: METFORMIN HYDROCHLORIDE\SITAGLIPTIN PHOSPHATE
     Dosage: 2 TABLET PER DAY
     Route: 048
  10. XANAX [Concomitant]
     Active Substance: ALPRAZOLAM
     Route: 048

REACTIONS (4)
  - Drug interaction [Unknown]
  - Bradycardia [Recovered/Resolved]
  - Syncope [Recovered/Resolved]
  - Cardiac arrest [Recovered/Resolved]

NARRATIVE: CASE EVENT DATE: 20161006
